FAERS Safety Report 24878792 (Version 3)
Quarter: 2025Q3

REPORT INFORMATION
  Report Type: Report from Study
  Country: US (occurrence: US)
  Receive Date: 20250123
  Receipt Date: 20250802
  Transmission Date: 20251021
  Serious: Yes (Hospitalization, Other)
  Sender: ALEXION PHARMACEUTICALS
  Company Number: US-AstraZeneca-CH-00783825A

PATIENT
  Sex: Female

DRUGS (1)
  1. SOLIRIS [Suspect]
     Active Substance: ECULIZUMAB
     Route: 065

REACTIONS (6)
  - Diabetes mellitus [Unknown]
  - Peripheral swelling [Unknown]
  - Oedema [Unknown]
  - Cardiac disorder [Unknown]
  - Renal disorder [Unknown]
  - Blister [Unknown]
